FAERS Safety Report 6172251-X (Version None)
Quarter: 2009Q2

REPORT INFORMATION
  Report Type: 
  Country: None (occurrence: None)
  Receive Date: 20090429
  Receipt Date: 20090421
  Transmission Date: 20091009
  Serious: No
  Sender: FDA-Public Use
  Company Number: US-JNJFOC-20090106558

PATIENT
  Sex: Male
  Weight: 136.08 kg

DRUGS (15)
  1. FENTANYL TRANSDERMAL SYSTEM [Suspect]
     Indication: BACK PAIN
     Route: 062
  2. FENTANYL TRANSDERMAL SYSTEM [Suspect]
     Indication: ARTHRITIS
     Route: 062
  3. AMBIEN [Concomitant]
     Indication: SLEEP DISORDER
     Route: 048
  4. GEODON [Concomitant]
     Indication: MENTAL DISORDER
     Dosage: 240MG CAPSULES/80MG CAPSULES ONCE DAILY
     Route: 048
  5. DEPAKOTE [Concomitant]
     Indication: MENTAL DISORDER
     Route: 048
  6. SEROQUEL [Concomitant]
     Indication: SLEEP DISORDER
     Dosage: 800MG/TABLET/400MG ONCE DAILY ORAL
     Route: 048
  7. NEXIUM [Concomitant]
     Indication: GASTRIC DISORDER
     Route: 048
  8. CYMBALTA [Concomitant]
     Indication: DEPRESSION
     Route: 048
  9. PROVIGIL [Concomitant]
     Indication: SLEEP DISORDER
     Route: 048
  10. LODINE [Concomitant]
     Indication: ANTIINFLAMMATORY THERAPY
     Route: 048
  11. SOMA [Concomitant]
     Indication: MUSCLE RELAXANT THERAPY
     Route: 048
  12. FAMOTIDINE [Concomitant]
     Indication: DYSPEPSIA
     Route: 048
  13. LAMICTAL [Concomitant]
     Route: 048
  14. UNKNOWN MEDICATION [Concomitant]
  15. ZOMIG [Concomitant]
     Indication: MIGRAINE
     Dosage: AS NEEDED
     Route: 048

REACTIONS (5)
  - DRUG INEFFECTIVE [None]
  - INAPPROPRIATE SCHEDULE OF DRUG ADMINISTRATION [None]
  - MALAISE [None]
  - WITHDRAWAL SYNDROME [None]
  - WRONG TECHNIQUE IN DRUG USAGE PROCESS [None]
